FAERS Safety Report 5784359-9 (Version None)
Quarter: 2008Q2

REPORT INFORMATION
  Report Type: 
  Country: None (occurrence: None)
  Receive Date: 20080620
  Receipt Date: 20080620
  Transmission Date: 20081010
  Serious: No
  Sender: FDA-Public Use
  Company Number: None

PATIENT
  Age: 58 Year
  Sex: Female
  Weight: 65 kg

DRUGS (1)
  1. NAPROSYN [Suspect]
     Dosage: 500MG TID PO
     Route: 048
     Dates: start: 20080606, end: 20080618

REACTIONS (1)
  - GASTROINTESTINAL HAEMORRHAGE [None]
